FAERS Safety Report 14295002 (Version 3)
Quarter: 2018Q2

REPORT INFORMATION
  Report Type: Report from Study
  Country: US (occurrence: US)
  Receive Date: 20171218
  Receipt Date: 20180423
  Transmission Date: 20180711
  Serious: Yes (Hospitalization, Other)
  Sender: FDA-Public Use
  Company Number: US-ROCHE-1981182

PATIENT
  Age: 60 Year
  Sex: Female

DRUGS (6)
  1. COTELLIC [Suspect]
     Active Substance: COBIMETINIB
     Dosage: DAILY FOR 21 CONSECUTIVE DAYS
     Route: 048
     Dates: start: 20160413, end: 201711
  2. ASPIRIN. [Concomitant]
     Active Substance: ASPIRIN
     Indication: PAIN
     Dosage: AS NEEDED
     Route: 048
  3. COTELLIC [Suspect]
     Active Substance: COBIMETINIB
     Indication: MALIGNANT MELANOMA
     Dosage: 21DAYS ON AND THEN 7 DAYS OFF
     Route: 048
     Dates: start: 201604, end: 201711
  4. ZELBORAF [Suspect]
     Active Substance: VEMURAFENIB
     Route: 048
     Dates: start: 201703
  5. ZELBORAF [Suspect]
     Active Substance: VEMURAFENIB
     Indication: MALIGNANT MELANOMA
     Route: 048
     Dates: start: 20150421
  6. ZELBORAF [Suspect]
     Active Substance: VEMURAFENIB
     Dosage: 4 TABLETS TWICE A DAY
     Route: 048
     Dates: start: 201410

REACTIONS (17)
  - Erythema [Recovering/Resolving]
  - Alopecia [Unknown]
  - Vasculitis [Unknown]
  - Diarrhoea [Recovering/Resolving]
  - Diplopia [Recovering/Resolving]
  - Fluid retention [Recovering/Resolving]
  - Blindness [Unknown]
  - Photosensitivity reaction [Recovering/Resolving]
  - Vision blurred [Recovering/Resolving]
  - Uveitis [Unknown]
  - Diarrhoea [Unknown]
  - Fatigue [Unknown]
  - Visual impairment [Unknown]
  - Eye disorder [Recovering/Resolving]
  - Peripheral swelling [Unknown]
  - Weight increased [Unknown]
  - Photosensitivity reaction [Recovering/Resolving]

NARRATIVE: CASE EVENT DATE: 201606
